FAERS Safety Report 5717978-6 (Version None)
Quarter: 2008Q2

REPORT INFORMATION
  Report Type: 
  Country: None (occurrence: None)
  Receive Date: 20080425
  Receipt Date: 20080418
  Transmission Date: 20081010
  Serious: Yes (Hospitalization)
  Sender: FDA-Public Use
  Company Number: A0724673A

PATIENT
  Age: 1 Year
  Sex: Female

DRUGS (4)
  1. ZINNAT [Suspect]
     Indication: DRUG USE FOR UNKNOWN INDICATION
     Route: 048
  2. PLASIL [Concomitant]
     Dates: start: 20080416
  3. FLORATIL [Concomitant]
     Dates: start: 20080416
  4. CEPHALEXIN [Concomitant]

REACTIONS (3)
  - APATHY [None]
  - DIARRHOEA [None]
  - VOMITING [None]
